FAERS Safety Report 7132002-9 (Version None)
Quarter: 2010Q4

REPORT INFORMATION
  Report Type: 
  Country: None (occurrence: None)
  Receive Date: 20101130
  Receipt Date: 20101130
  Transmission Date: 20110411
  Serious: Yes (Hospitalization)
  Sender: FDA-Public Use
  Company Number: None

PATIENT
  Sex: Female
  Weight: 65.318 kg

DRUGS (1)
  1. ZARAH 3-0.03 UNKNOWN [Suspect]
     Indication: CONTRACEPTION
     Dosage: ONE TAB DAILY PO
     Route: 048
     Dates: start: 20100319, end: 20101118

REACTIONS (2)
  - PELVIC VENOUS THROMBOSIS [None]
  - PULMONARY EMBOLISM [None]
